FAERS Safety Report 6685769-8 (Version None)
Quarter: 2010Q2

REPORT INFORMATION
  Report Type: 
  Country: None (occurrence: None)
  Receive Date: 20100415
  Receipt Date: 20100415
  Transmission Date: 20101027
  Serious: Yes (Hospitalization)
  Sender: FDA-Public Use
  Company Number: None

PATIENT
  Age: 71 Year
  Sex: Male

DRUGS (5)
  1. LISINOPRIL [Suspect]
     Indication: HYPERTENSION
     Dosage: 10MG ONCE A DAY PO
     Route: 048
     Dates: start: 20080724, end: 20080730
  2. LISINOPRIL [Suspect]
     Indication: TYPE 2 DIABETES MELLITUS
     Dosage: 10MG ONCE A DAY PO
     Route: 048
     Dates: start: 20080724, end: 20080730
  3. FELODIPINE [Concomitant]
  4. ATORVASTATIN [Concomitant]
  5. ESOMEPRAZOLE [Concomitant]

REACTIONS (4)
  - CIRCUMORAL OEDEMA [None]
  - DYSPNOEA [None]
  - FACE OEDEMA [None]
  - PARAESTHESIA ORAL [None]
